FAERS Safety Report 16334212 (Version 2)
Quarter: 2019Q3

REPORT INFORMATION
  Report Type: Spontaneous
  Country: CA (occurrence: CA)
  Receive Date: 20190520
  Receipt Date: 20190910
  Transmission Date: 20191004
  Serious: Yes (Disabling, Other)
  Sender: FDA-Public Use
  Company Number: CA-PFIZER INC-2019208149

PATIENT
  Sex: Female

DRUGS (24)
  1. XELJANZ [Suspect]
     Active Substance: TOFACITINIB CITRATE
     Indication: RHEUMATOID ARTHRITIS
     Dosage: 5 MG, 2X/DAY
     Route: 048
  2. ROSUVASTATIN CALCIUM. [Concomitant]
     Active Substance: ROSUVASTATIN CALCIUM
     Dosage: 40 MG, 1X/DAY
     Route: 065
  3. HUMIRA [Suspect]
     Active Substance: ADALIMUMAB
     Dosage: 40 MG, 1 EVERY 2 WEEKS
     Route: 058
  4. PREDNISONE. [Suspect]
     Active Substance: PREDNISONE
     Dosage: UNK
     Route: 065
  5. ACIDOPHILUS [Concomitant]
     Active Substance: LACTOBACILLUS ACIDOPHILUS
     Dosage: UNK
     Route: 065
  6. BISOPROLOL [Concomitant]
     Active Substance: BISOPROLOL
     Dosage: UNK
     Route: 065
  7. LIDOCAINE. [Concomitant]
     Active Substance: LIDOCAINE
     Dosage: 1 MG, UNK
     Route: 061
  8. METRONIDAZOLE. [Concomitant]
     Active Substance: METRONIDAZOLE
     Dosage: UNK
     Route: 065
  9. RISEDRONATE [Concomitant]
     Active Substance: RISEDRONATE SODIUM
     Dosage: 150 MG, MONTHLY
     Route: 065
  10. DEFLAZACORT [Concomitant]
     Active Substance: DEFLAZACORT
     Dosage: 6 MG, 3X/DAY
     Route: 065
  11. ERGOCALCIFEROL. [Concomitant]
     Active Substance: ERGOCALCIFEROL
     Dosage: UNK
     Route: 065
  12. HUMIRA [Suspect]
     Active Substance: ADALIMUMAB
     Indication: RHEUMATOID ARTHRITIS
     Dosage: 40 MG, 1 EVERY 2 WEEKS
     Route: 058
  13. ASPIRIN [ACETYLSALICYLIC ACID] [Concomitant]
     Active Substance: ASPIRIN
     Dosage: UNK
     Route: 065
  14. TYLENOL [Concomitant]
     Active Substance: ACETAMINOPHEN
     Dosage: UNK
     Route: 048
  15. METHOTREXATE SODIUM. [Suspect]
     Active Substance: METHOTREXATE SODIUM
     Dosage: 1 EVERY 1 WEEK
  16. CALCIUM GLUCONATE. [Concomitant]
     Active Substance: CALCIUM GLUCONATE
     Dosage: UNK
     Route: 065
  17. PANTOLOC [PANTOPRAZOLE] [Concomitant]
     Active Substance: PANTOPRAZOLE SODIUM
     Dosage: 40 MG, 1X/DAY
     Route: 065
  18. METHOTREXATE SODIUM. [Suspect]
     Active Substance: METHOTREXATE SODIUM
     Indication: RHEUMATOID ARTHRITIS
     Dosage: UNK
     Route: 065
  19. COVERSYL [PERINDOPRIL ARGININE] [Concomitant]
     Active Substance: PERINDOPRIL ARGININE
     Dosage: 4 MG, 1X/DAY
     Route: 065
  20. DILAUDID [Concomitant]
     Active Substance: HYDROMORPHONE HYDROCHLORIDE
     Dosage: 1 DF, EVERY 4 HRS
     Route: 065
  21. HYDROMORPHONE HYDROCHLORIDE. [Concomitant]
     Active Substance: HYDROMORPHONE HYDROCHLORIDE
     Dosage: 9 MG, 2X/DAY
     Route: 065
  22. KENALOG [Concomitant]
     Active Substance: TRIAMCINOLONE ACETONIDE
     Dosage: 1 MG, UNK
     Route: 065
  23. NITROGLYCERIN. [Concomitant]
     Active Substance: NITROGLYCERIN
     Dosage: UNK
     Route: 065
  24. SALBUTAMOL [Concomitant]
     Active Substance: ALBUTEROL
     Dosage: UNK
     Route: 065

REACTIONS (33)
  - Pneumonia [Recovered/Resolved]
  - Infection [Recovered/Resolved]
  - Septic arthritis staphylococcal [Recovered/Resolved]
  - Bursitis infective [Recovered/Resolved]
  - Heart rate increased [Recovered/Resolved]
  - Localised infection [Recovered/Resolved]
  - Nausea [Recovered/Resolved]
  - Staphylococcal infection [Recovered/Resolved]
  - Gastrointestinal disorder [Recovered/Resolved]
  - Blood pressure abnormal [Recovered/Resolved]
  - Bronchiectasis [Recovered/Resolved]
  - Nasopharyngitis [Recovered/Resolved]
  - Phantom limb syndrome [Recovered/Resolved]
  - Skin discolouration [Recovered/Resolved]
  - Skin infection [Recovered/Resolved]
  - Synovitis [Recovered/Resolved]
  - Tenosynovitis [Recovered/Resolved]
  - Wound complication [Recovered/Resolved]
  - Drug hypersensitivity [Recovered/Resolved]
  - Respiratory tract infection [Recovered/Resolved]
  - Drug ineffective [Recovered/Resolved]
  - Diabetes mellitus [Recovered/Resolved]
  - General physical health deterioration [Recovered/Resolved]
  - Osteoporosis [Recovered/Resolved]
  - Bone disorder [Recovered/Resolved]
  - Lower respiratory tract infection [Recovered/Resolved]
  - Osteogenesis imperfecta [Recovered/Resolved]
  - Rash [Recovered/Resolved]
  - Peripheral vascular disorder [Recovered/Resolved]
  - Renal failure [Recovered/Resolved]
  - Skin ulcer [Recovered/Resolved]
  - Pain [Recovered/Resolved]
  - Rheumatoid arthritis [Recovered/Resolved]
